FAERS Safety Report 13961564 (Version 2)
Quarter: 2017Q4

REPORT INFORMATION
  Report Type: Spontaneous
  Country: FR (occurrence: FR)
  Receive Date: 20170912
  Receipt Date: 20171016
  Transmission Date: 20180320
  Serious: Yes (Other)
  Sender: FDA-Public Use
  Company Number: FR-MERCK KGAA-2025916

PATIENT
  Age: 49 Year
  Sex: Female

DRUGS (7)
  1. ISIMIG [Concomitant]
  2. LEVOTHYROX NF [Suspect]
     Active Substance: LEVOTHYROXINE SODIUM
     Dates: start: 20170721
  3. NOVOTHYROX [Suspect]
     Active Substance: LEVOTHYROXINE SODIUM
     Indication: POST PROCEDURAL HYPOTHYROIDISM
     Route: 048
     Dates: start: 20170520
  4. LEXOMIL [Concomitant]
     Active Substance: BROMAZEPAM
  5. LEVOTHYROX NF [Suspect]
     Active Substance: LEVOTHYROXINE SODIUM
     Dates: start: 20170721
  6. CODOLIPRANE (PANADEINE CO) [Concomitant]
  7. INORIAL [Concomitant]
     Active Substance: BILASTINE

REACTIONS (4)
  - Insomnia [Not Recovered/Not Resolved]
  - Product formulation issue [Not Recovered/Not Resolved]
  - Constipation [Not Recovered/Not Resolved]
  - Blood parathyroid hormone normal [Recovered/Resolved]

NARRATIVE: CASE EVENT DATE: 2017
